FAERS Safety Report 18474398 (Version 1)
Quarter: 2020Q4

REPORT INFORMATION
  Report Type: Spontaneous
  Country: US (occurrence: US)
  Receive Date: 20201106
  Receipt Date: 20201106
  Transmission Date: 20210114
  Serious: Yes (Other)
  Sender: FDA-Public Use
  Company Number: US-AMNEAL PHARMACEUTICALS-2020-AMRX-03462

PATIENT
  Age: 17 Year
  Sex: Male

DRUGS (1)
  1. GUANFACINE. [Suspect]
     Active Substance: GUANFACINE
     Indication: PRODUCT USED FOR UNKNOWN INDICATION
     Dosage: 80 MG OF EXTENDED RELEASE
     Route: 048

REACTIONS (3)
  - Pulmonary oedema [Unknown]
  - Toxicity to various agents [Unknown]
  - Overdose [Unknown]
